FAERS Safety Report 10205603 (Version 3)
Quarter: 2014Q2

REPORT INFORMATION
  Report Type: Spontaneous
  Country: JP (occurrence: JP)
  Receive Date: 20140529
  Receipt Date: 20140603
  Transmission Date: 20141212
  Serious: Yes (Other)
  Sender: FDA-Public Use
  Company Number: JP-009507513-1405JPN013099

PATIENT
  Age: 1 Year
  Sex: Male

DRUGS (8)
  1. SINGULAIR FINE GRANULES 4MG [Suspect]
     Indication: ASTHMA
     Dosage: 4 MG, QD
     Route: 048
     Dates: start: 20140424, end: 201404
  2. SINGULAIR FINE GRANULES 4MG [Suspect]
     Dosage: 4 MG, QD
     Route: 048
     Dates: start: 20140427, end: 20140427
  3. MEPTIN [Suspect]
     Dosage: DAILY DOSE UNKNOWN
     Route: 048
  4. MEPTIN [Suspect]
     Dosage: DAILY DOSE UNKNOWN
     Route: 048
  5. MUCOTRON [Concomitant]
     Dosage: DAILY DOSAGE UNKNOWN
     Route: 048
  6. PULSMARIN A [Concomitant]
     Dosage: DAILY DOSAGE UNKNOWN
     Route: 048
  7. CLAVAMOX [Concomitant]
     Dosage: DAILY DOSAGE UNKNOWN
     Route: 048
  8. BIOFERMIN R [Concomitant]
     Dosage: DAILY DOSAGE UNKNOWN
     Route: 048

REACTIONS (4)
  - Abnormal behaviour [Recovered/Resolved]
  - Abnormal behaviour [Recovered/Resolved]
  - Agitation [Recovered/Resolved]
  - Agitation [Recovered/Resolved]
